FAERS Safety Report 6047058-4 (Version None)
Quarter: 2009Q1

REPORT INFORMATION
  Report Type: 
  Country: None (occurrence: None)
  Receive Date: 20090122
  Receipt Date: 20090115
  Transmission Date: 20090719
  Serious: Yes (Hospitalization)
  Sender: FDA-Public Use
  Company Number: FR-ASTRAZENECA-2009CG00186

PATIENT
  Age: 9783 Day
  Sex: Male

DRUGS (4)
  1. NAROPEINE [Suspect]
     Route: 033
     Dates: start: 20081217, end: 20081217
  2. DROLEPTAN [Suspect]
     Route: 042
     Dates: start: 20081217, end: 20081218
  3. ACUPAN [Suspect]
     Route: 042
     Dates: start: 20081217, end: 20081218
  4. AUGMENTIN '125' [Suspect]
     Route: 042
     Dates: start: 20081217, end: 20081218

REACTIONS (1)
  - MUSCLE CONTRACTURE [None]
